FAERS Safety Report 14595265 (Version 1)
Quarter: 2018Q1

REPORT INFORMATION
  Report Type: Spontaneous
  Country: US (occurrence: US)
  Receive Date: 20180302
  Receipt Date: 20180302
  Transmission Date: 20180509
  Serious: No
  Sender: FDA-Public Use
  Company Number: US-AKORN PHARMACEUTICALS-2017AKN01444

PATIENT
  Sex: Female

DRUGS (2)
  1. MYORISAN [Suspect]
     Active Substance: ISOTRETINOIN
     Dosage: 40 MG, UNK
     Dates: start: 20170512, end: 2017
  2. MYORISAN [Suspect]
     Active Substance: ISOTRETINOIN
     Dosage: 80 MG, UNK
     Dates: start: 2017, end: 20170918

REACTIONS (3)
  - Skin exfoliation [Unknown]
  - Lip dry [Unknown]
  - Chapped lips [Unknown]

NARRATIVE: CASE EVENT DATE: 2017
